FAERS Safety Report 18126067 (Version 1)
Quarter: 2020Q3

REPORT INFORMATION
  Report Type: Spontaneous
  Country: JP (occurrence: JP)
  Receive Date: 20200808
  Receipt Date: 20200808
  Transmission Date: 20201103
  Serious: Yes (Hospitalization, Other)
  Sender: FDA-Public Use
  Company Number: JP-AMGEN-JPNSP2020075104

PATIENT
  Age: 69 Year
  Sex: Female
  Weight: 58 kg

DRUGS (12)
  1. RANMARK [Suspect]
     Active Substance: DENOSUMAB
     Indication: METASTASES TO BONE
     Dosage: 120 MILLIGRAM, Q4WK
     Route: 058
     Dates: start: 20200416
  2. ATENOLOL. [Concomitant]
     Active Substance: ATENOLOL
     Indication: HYPERTENSION
     Dosage: 50 MG, QD
     Route: 048
  3. AMLODIPINE [Concomitant]
     Active Substance: AMLODIPINE BESYLATE
     Indication: HYPERTENSION
     Dosage: 5 MG, QD
     Route: 048
  4. DENOTAS [Interacting]
     Active Substance: CALCIUM CARBONATE\CHOLECALCIFEROL\MAGNESIUM CARBONATE
     Indication: METASTASES TO BONE
     Dosage: UNK
     Route: 065
  5. BENZALIN [Concomitant]
     Indication: EPILEPSY
     Dosage: 5 MILLIGRAM
     Route: 048
  6. SPIRONOLACTONE. [Concomitant]
     Active Substance: SPIRONOLACTONE
     Indication: HYPERTENSION
     Dosage: 25 MG, BID
     Route: 048
  7. HYDANTOL [Interacting]
     Active Substance: PHENYTOIN SODIUM
     Indication: EPILEPSY
     Dosage: 3 DOSAGE FORM
     Route: 048
  8. RISPERIDONE. [Concomitant]
     Active Substance: RISPERIDONE
     Indication: SCHIZOPHRENIA
     Dosage: 0.5 MG, QD
     Route: 048
  9. AMITIZA [Concomitant]
     Active Substance: LUBIPROSTONE
     Indication: CONSTIPATION
     Dosage: 24 UG, BID
     Route: 048
  10. LETROZOLE. [Concomitant]
     Active Substance: LETROZOLE
     Indication: BREAST CANCER
     Dosage: 2.5 MILLIGRAM, QD
     Route: 048
     Dates: start: 20200428
  11. LIXIANA [Concomitant]
     Active Substance: EDOXABAN TOSYLATE
     Indication: DEEP VEIN THROMBOSIS
     Dosage: 60 MG, QD
     Route: 048
  12. FUROSEMIDE. [Concomitant]
     Active Substance: FUROSEMIDE
     Indication: HYPERTENSION
     Dosage: 20 MG, QD
     Route: 048

REACTIONS (4)
  - Hypocalcaemia [Unknown]
  - Drug interaction [Unknown]
  - Malignant pleural effusion [Unknown]
  - Dyspnoea [Unknown]

NARRATIVE: CASE EVENT DATE: 20200423
